FAERS Safety Report 6701811-X (Version None)
Quarter: 2010Q2

REPORT INFORMATION
  Report Type: 
  Country: None (occurrence: None)
  Receive Date: 20100429
  Receipt Date: 20100421
  Transmission Date: 20101027
  Serious: Yes (Disabling, Other)
  Sender: FDA-Public Use
  Company Number: CA-ASTRAZENECA-2010SE17708

PATIENT
  Age: 41 Year
  Sex: Female
  Weight: 61 kg

DRUGS (5)
  1. ENTOCORT CAPSULES [Suspect]
     Route: 048
  2. IMURAN [Suspect]
     Route: 048
  3. REMICADE [Suspect]
     Dosage: 300MG ONE EVERY SIX WEEKS
     Route: 042
  4. SOLU-CORTEF [Suspect]
     Route: 030
  5. BENADRYL [Concomitant]

REACTIONS (3)
  - CROHN'S DISEASE [None]
  - HERPES ZOSTER [None]
  - PAIN OF SKIN [None]
